FAERS Safety Report 24286032 (Version 1)
Quarter: 2024Q3

REPORT INFORMATION
  Report Type: Report from Study
  Country: US (occurrence: US)
  Receive Date: 20240905
  Receipt Date: 20240905
  Transmission Date: 20241016
  Serious: Yes (Hospitalization, Other)
  Sender: ABBVIE
  Company Number: US-ABBVIE-5903994

PATIENT
  Sex: Female

DRUGS (4)
  1. SKYRIZI [Suspect]
     Active Substance: RISANKIZUMAB-RZAA
     Indication: Crohn^s disease
     Dosage: STRENGTH 360/2.GM AT WEEK 12 ? THEN EVERY 8 WEEKS THEREAFTER
     Route: 058
     Dates: start: 20240815, end: 20240815
  2. SKYRIZI [Suspect]
     Active Substance: RISANKIZUMAB-RZAA
     Indication: Crohn^s disease
     Dosage: WEEK 4
     Route: 042
     Dates: start: 202406, end: 202406
  3. SKYRIZI [Suspect]
     Active Substance: RISANKIZUMAB-RZAA
     Indication: Crohn^s disease
     Dosage: WEEK 0
     Route: 042
     Dates: start: 202405, end: 202405
  4. SKYRIZI [Suspect]
     Active Substance: RISANKIZUMAB-RZAA
     Indication: Crohn^s disease
     Dosage: WEEK 8
     Route: 042
     Dates: start: 20240718, end: 20240718

REACTIONS (4)
  - Cerebrovascular accident [Unknown]
  - Vision blurred [Not Recovered/Not Resolved]
  - Hemiparesis [Not Recovered/Not Resolved]
  - Abdominal pain lower [Not Recovered/Not Resolved]

NARRATIVE: CASE EVENT DATE: 20240101
